FAERS Safety Report 17395886 (Version 3)
Quarter: 2020Q2

REPORT INFORMATION
  Report Type: Spontaneous
  Country: US (occurrence: US)
  Receive Date: 20200210
  Receipt Date: 20200430
  Transmission Date: 20200713
  Serious: Yes (Death, Congenital Anomaly)
  Sender: FDA-Public Use
  Company Number: US-ASTRAZENECA-2020SE19665

PATIENT
  Age: 60 Day
  Sex: Male

DRUGS (4)
  1. SYNAGIS [Suspect]
     Active Substance: PALIVIZUMAB
     Indication: VENTRICULAR SEPTAL DEFECT
     Route: 030
     Dates: start: 20200121, end: 20200204
  2. SYNAGIS [Suspect]
     Active Substance: PALIVIZUMAB
     Indication: VENTRICULAR SEPTAL DEFECT
     Route: 030
     Dates: start: 20200121, end: 20200204
  3. SYNAGIS [Suspect]
     Active Substance: PALIVIZUMAB
     Indication: CYTOGENETIC ABNORMALITY
     Route: 030
     Dates: start: 20200121, end: 20200204
  4. SYNAGIS [Suspect]
     Active Substance: PALIVIZUMAB
     Indication: COARCTATION OF THE AORTA
     Route: 030
     Dates: start: 20200121, end: 20200204

REACTIONS (1)
  - Kleefstra syndrome [Fatal]

NARRATIVE: CASE EVENT DATE: 20200204
